FAERS Safety Report 5220363-7 (Version None)
Quarter: 2007Q1

REPORT INFORMATION
  Report Type: 
  Country: None (occurrence: None)
  Receive Date: 20061201
  Receipt Date: 20060711
  Transmission Date: 20070707
  Serious: No
  Sender: FDA-Public Use
  Company Number: 2006PV017353

PATIENT
  Age: 51 Year
  Sex: Male
  Weight: 99.7913 kg

DRUGS (10)
  1. BYETTA [Suspect]
     Indication: DIABETES MELLITUS NON-INSULIN-DEPENDENT
     Dosage: SEE IMAGE
     Route: 058
     Dates: start: 20060501, end: 20060601
  2. BYETTA [Suspect]
     Indication: DIABETES MELLITUS NON-INSULIN-DEPENDENT
     Dosage: SEE IMAGE
     Route: 058
     Dates: start: 20060601
  3. GLUCOPHAGE [Concomitant]
  4. ACTOS [Concomitant]
  5. GLIPIZIDE [Concomitant]
  6. ALTASE [Concomitant]
  7. NADOLOL [Concomitant]
  8. HYDROCHLOROTHIAZIDE [Concomitant]
  9. PRILOSEC [Concomitant]
  10. MULTI-VITAMINS [Concomitant]

REACTIONS (4)
  - CHEST DISCOMFORT [None]
  - CHILLS [None]
  - HEADACHE [None]
  - NAUSEA [None]
